APPROVED DRUG PRODUCT: SLO-BID
Active Ingredient: THEOPHYLLINE
Strength: 125MG
Dosage Form/Route: CAPSULE, EXTENDED RELEASE;ORAL
Application: A089540 | Product #001
Applicant: SANOFI AVENTIS US LLC
Approved: May 10, 1989 | RLD: No | RS: No | Type: DISCN